FAERS Safety Report 5928233-3 (Version None)
Quarter: 2008Q4

REPORT INFORMATION
  Report Type: 
  Country: None (occurrence: None)
  Receive Date: 20081023
  Receipt Date: 20080610
  Transmission Date: 20090506
  Serious: Yes (Hospitalization, Other)
  Sender: FDA-Public Use
  Company Number: US-MERCK-0804USA06347

PATIENT
  Age: 63 Year
  Sex: Female

DRUGS (5)
  1. FOSAMAX PLUS D [Suspect]
     Indication: OSTEOPOROSIS PROPHYLAXIS
     Route: 048
     Dates: start: 20070101
  2. NEXIUM [Concomitant]
     Route: 065
  3. LORAZEPAM [Concomitant]
     Route: 065
  4. ALBUTEROL [Concomitant]
     Route: 065
  5. FLOVENT [Concomitant]
     Route: 065

REACTIONS (8)
  - ADVERSE EVENT [None]
  - ATRIAL FIBRILLATION [None]
  - ATRIAL FLUTTER [None]
  - DIZZINESS [None]
  - INAPPROPRIATE SCHEDULE OF DRUG ADMINISTRATION [None]
  - LOSS OF CONSCIOUSNESS [None]
  - PALPITATIONS [None]
  - PULMONARY MASS [None]
